FAERS Safety Report 7111446-5 (Version None)
Quarter: 2010Q4

REPORT INFORMATION
  Report Type: 
  Country: None (occurrence: None)
  Receive Date: 20101118
  Receipt Date: 20100510
  Transmission Date: 20110411
  Serious: No
  Sender: FDA-Public Use
  Company Number: US-PFIZER INC-2010059057

PATIENT
  Sex: Female
  Weight: 74.8 kg

DRUGS (7)
  1. ZYVOX [Suspect]
     Indication: INFECTION
     Dosage: 600 MG, 1X/DAY
     Route: 048
     Dates: start: 20100101
  2. ACETYLSALICYLIC ACID [Concomitant]
     Dosage: 320 MG, UNK
  3. FOLIC ACID [Concomitant]
     Indication: IMMUNE SYSTEM DISORDER
     Dosage: 1 MG, DAILY
     Route: 048
  4. COREG [Concomitant]
     Indication: HYPERTENSION
     Dosage: 12.5 MG, UNK
     Route: 048
  5. ZEMPLAR [Concomitant]
     Indication: RENAL DISORDER
     Dosage: 1 UG, 3X/WEEK
  6. ZOCOR [Concomitant]
     Indication: BLOOD CHOLESTEROL INCREASED
     Dosage: 40 MG, DAILY
     Route: 048
  7. VITAMIN D [Concomitant]
     Dosage: 50000 UNITS, 1X/MONTH

REACTIONS (1)
  - TOOTH DISCOLOURATION [None]
